FAERS Safety Report 25154445 (Version 1)
Quarter: 2025Q2

REPORT INFORMATION
  Report Type: Other
  Country: CA (occurrence: CA)
  Receive Date: 20250403
  Receipt Date: 20250403
  Transmission Date: 20250717
  Serious: Yes (Other)
  Sender: B BRAUN
  Company Number: CA-B.Braun Medical Inc.-2174173

PATIENT
  Sex: Male

DRUGS (19)
  1. SODIUM CHLORIDE [Suspect]
     Active Substance: SODIUM CHLORIDE
     Indication: Rhinitis allergic
  2. STANDARDIZED MITE MIX [Suspect]
     Active Substance: DERMATOPHAGOIDES FARINAE\DERMATOPHAGOIDES PTERONYSSINUS
  3. ULMUS AMERICANA POLLEN [Suspect]
     Active Substance: ULMUS AMERICANA POLLEN
  4. WHITE BIRCH [Suspect]
     Active Substance: BETULA POPULIFOLIA POLLEN
  5. SALIX NIGRA POLLEN [Suspect]
     Active Substance: SALIX NIGRA POLLEN
  6. GIANT RAGWEED [Suspect]
     Active Substance: AMBROSIA TRIFIDA POLLEN
  7. RAGWEED MIXTURE [Suspect]
     Active Substance: AMBROSIA ARTEMISIIFOLIA POLLEN\AMBROSIA BIDENTATA POLLEN\AMBROSIA PSILOSTACHYA POLLEN\AMBROSIA TRIFI
  8. QUERCUS RUBRA POLLEN [Suspect]
     Active Substance: QUERCUS RUBRA POLLEN
  9. POPULUS DELTOIDES POLLEN [Suspect]
     Active Substance: POPULUS DELTOIDES POLLEN
  10. PLATANUS OCCIDENTALIS POLLEN [Suspect]
     Active Substance: PLATANUS OCCIDENTALIS POLLEN
  11. JUGLANS NIGRA POLLEN [Suspect]
     Active Substance: JUGLANS NIGRA POLLEN
  12. FRAXINUS AMERICANA POLLEN [Suspect]
     Active Substance: FRAXINUS AMERICANA POLLEN
  13. FAGUS SYLVATICA FLOWERING TOP [Suspect]
     Active Substance: FAGUS SYLVATICA FLOWERING TOP
  14. HERBALS [Suspect]
     Active Substance: HERBALS
  15. BETULA NIGRA POLLEN [Suspect]
     Active Substance: BETULA NIGRA POLLEN
  16. ARTEMISIA VULGARIS POLLEN [Suspect]
     Active Substance: ARTEMISIA VULGARIS POLLEN
  17. ACER SACCHARUM POLLEN [Suspect]
     Active Substance: ACER SACCHARUM POLLEN
  18. PHENOL [Suspect]
     Active Substance: PHENOL
  19. AGROSTIS GIGANTEA POLLEN\DACTYLIS GLOMERATA POLLEN\PHLEUM PRATENSE POL [Suspect]
     Active Substance: AGROSTIS GIGANTEA POLLEN\DACTYLIS GLOMERATA POLLEN\PHLEUM PRATENSE POLLEN\POA PRATENSIS POLLEN

REACTIONS (5)
  - Abdominal pain [Recovered/Resolved]
  - Rash [Recovered/Resolved]
  - Nasal congestion [Recovered/Resolved]
  - Diarrhoea [Recovered/Resolved]
  - Anaphylactoid reaction [Recovered/Resolved]
